FAERS Safety Report 10537183 (Version 2)
Quarter: 2014Q4

REPORT INFORMATION
  Report Type: Spontaneous
  Country: DE (occurrence: DE)
  Receive Date: 20141022
  Receipt Date: 20141027
  Transmission Date: 20150529
  Serious: Yes (Death)
  Sender: FDA-Public Use
  Company Number: PHHY2014DE136624

PATIENT
  Sex: Male

DRUGS (4)
  1. AFINITOR [Suspect]
     Active Substance: EVEROLIMUS
     Indication: NEUROENDOCRINE TUMOUR
     Dosage: 10 MG, QD
     Route: 048
     Dates: start: 201303
  2. AFINITOR [Suspect]
     Active Substance: EVEROLIMUS
     Indication: OFF LABEL USE
  3. MORPHINE [Concomitant]
     Active Substance: MORPHINE
     Indication: TUMOUR PAIN
     Dosage: UNK
     Route: 065
  4. SOMATULIN [Concomitant]
     Indication: NEUROENDOCRINE TUMOUR
     Dosage: 90 MG, EVERY 28 DAYS
     Route: 058

REACTIONS (7)
  - Abdominal pain upper [Unknown]
  - Malignant neoplasm progression [Fatal]
  - Skin exfoliation [Recovered/Resolved]
  - Metastases to liver [Fatal]
  - Mucosal inflammation [Recovered/Resolved]
  - Laceration [Recovered/Resolved]
  - Oedema [Unknown]
